FAERS Safety Report 24303938 (Version 1)
Quarter: 2024Q3

REPORT INFORMATION
  Report Type: Spontaneous
  Country: US (occurrence: None)
  Receive Date: 20240910
  Receipt Date: 20240910
  Transmission Date: 20241017
  Serious: Yes (Disabling, Other)
  Sender: Public
  Company Number: None

PATIENT
  Age: 43 Year
  Sex: Male
  Weight: 100.8 kg

DRUGS (8)
  1. SEMAGLUTIDE [Suspect]
     Active Substance: SEMAGLUTIDE
     Indication: Weight decreased
     Dosage: OTHER QUANTITY : 1 INJECTION(S);?OTHER FREQUENCY : WEEKLY;?OTHER ROUTE : INJECTION IN BUTTOCKS REGIO
     Route: 050
     Dates: start: 20221001, end: 20231215
  2. ULORIC [Concomitant]
     Active Substance: FEBUXOSTAT
  3. METOPROLOL [Concomitant]
     Active Substance: METOPROLOL
  4. lisinipril [Concomitant]
  5. escitilipram [Concomitant]
  6. atorvistatin [Concomitant]
  7. CREON [Concomitant]
     Active Substance: PANCRELIPASE AMYLASE\PANCRELIPASE LIPASE\PANCRELIPASE PROTEASE
  8. Daily multivitamins [Concomitant]

REACTIONS (2)
  - Diarrhoea [None]
  - Pancreatic failure [None]

NARRATIVE: CASE EVENT DATE: 20231215
